FAERS Safety Report 20622049 (Version 2)
Quarter: 2023Q1

REPORT INFORMATION
  Report Type: Spontaneous
  Country: US (occurrence: US)
  Receive Date: 20220322
  Receipt Date: 20230322
  Transmission Date: 20230417
  Serious: No
  Sender: FDA-Public Use
  Company Number: US-ALLERGAN-2134174US

PATIENT
  Age: 87 Year
  Sex: Female

DRUGS (9)
  1. LUMIGAN [Suspect]
     Active Substance: BIMATOPROST
     Indication: Normal tension glaucoma
     Dosage: 1 GTT, QHS
     Route: 047
  2. LUMIGAN [Suspect]
     Active Substance: BIMATOPROST
     Dosage: 2 GTT, QHS
     Route: 047
     Dates: start: 2020
  3. OMEPRAZOLE [Concomitant]
     Active Substance: OMEPRAZOLE
     Indication: Gastrooesophageal reflux disease
     Dosage: 20 MG 1 TABLET IN THE MORNING AND 1 TABLET AT NIGHT
     Route: 048
  4. SYNTHROID [Concomitant]
     Active Substance: LEVOTHYROXINE SODIUM
     Indication: Thyroid disorder
     Dosage: 0.25 ?G, QD
     Route: 048
  5. VITAMIN D NOS [Concomitant]
     Active Substance: VITAMIN D NOS
     Indication: Vitamin D deficiency
     Dosage: 50.000 MG, Q WEEK
     Route: 048
  6. VITAMIN D2 [Concomitant]
     Active Substance: ERGOCALCIFEROL
     Indication: Vitamin D deficiency
     Dosage: UNK
  7. Unknown chemo drug [Concomitant]
     Indication: Lymphoma
  8. Unknown radiation [Concomitant]
     Indication: Lymphoma
  9. VALSARTAN [Concomitant]
     Active Substance: VALSARTAN
     Indication: Hypertension
     Dosage: 40 MG 2 TABLETS IN THE MORNING, 1 TABLET AT NIGHT- HOLD IF BP IS BELOW 130 AT NIGHT
     Route: 048

REACTIONS (3)
  - Hypertension [Unknown]
  - Hair growth abnormal [Unknown]
  - Growth of eyelashes [Unknown]

NARRATIVE: CASE EVENT DATE: 20221101
